FAERS Safety Report 9840951 (Version 1)
Quarter: 2014Q1

REPORT INFORMATION
  Report Type: Spontaneous
  Country: US (occurrence: US)
  Receive Date: 20140124
  Receipt Date: 20140124
  Transmission Date: 20141002
  Serious: Yes (Other)
  Sender: FDA-Public Use
  Company Number: US-ELI_LILLY_AND_COMPANY-US201401005124

PATIENT
  Sex: Female

DRUGS (11)
  1. CYMBALTA [Suspect]
     Indication: DEPRESSION
     Dosage: UNK, UNKNOWN
     Route: 065
  2. CYMBALTA [Suspect]
     Dosage: 60 MG, BID
     Route: 065
  3. ACYCLOVIR                          /00587301/ [Concomitant]
  4. CYCLOPHOSPHAMIDE [Concomitant]
  5. OXYCODONE [Concomitant]
  6. ONDANSETRON [Concomitant]
  7. ENALAPRIL [Concomitant]
  8. CLONAZEPAM [Concomitant]
  9. AMLODIPIN                          /00972401/ [Concomitant]
  10. ALBUTEROL                          /00139501/ [Concomitant]
  11. ATORVASTATIN [Concomitant]

REACTIONS (2)
  - Plasma cell myeloma [Unknown]
  - Systemic lupus erythematosus [Unknown]
